FAERS Safety Report 6693104-4 (Version None)
Quarter: 2010Q2

REPORT INFORMATION
  Report Type: 
  Country: None (occurrence: None)
  Receive Date: 20100420
  Receipt Date: 20100413
  Transmission Date: 20101027
  Serious: Yes (Hospitalization, Other)
  Sender: FDA-Public Use
  Company Number: TPA2010A02042

PATIENT
  Age: 62 Year
  Sex: Female
  Weight: 82.5547 kg

DRUGS (9)
  1. ACTOS [Suspect]
     Indication: TYPE 2 DIABETES MELLITUS
     Dosage: 30 MG, 1 IN 1 D, PER ORAL; 15 MG, 1 IN 1 D, PER ORAL
     Route: 048
     Dates: start: 20060101, end: 20090101
  2. ACTOS [Suspect]
     Indication: TYPE 2 DIABETES MELLITUS
     Dosage: 30 MG, 1 IN 1 D, PER ORAL; 15 MG, 1 IN 1 D, PER ORAL
     Route: 048
     Dates: start: 20090101
  3. VERAPAMIL [Concomitant]
  4. SYMBICORT [Concomitant]
  5. ALBUTEROL [Concomitant]
  6. PRAVACHOL [Concomitant]
  7. METFORMIN HCL [Concomitant]
  8. NOVALOG (INSULIN ASPART) [Concomitant]
  9. LANTUS [Concomitant]

REACTIONS (7)
  - ARRHYTHMIA [None]
  - CEREBROVASCULAR ACCIDENT [None]
  - DEHYDRATION [None]
  - DIABETIC KETOACIDOSIS [None]
  - FALL [None]
  - LETHARGY [None]
  - PANCREATITIS [None]
